FAERS Safety Report 6141908-9 (Version None)
Quarter: 2009Q2

REPORT INFORMATION
  Report Type: 
  Country: None (occurrence: None)
  Receive Date: 20090402
  Receipt Date: 20090323
  Transmission Date: 20091009
  Serious: Yes (Life-Threatening, Hospitalization, Other)
  Sender: FDA-Public Use
  Company Number: FR-MEDIMMUNE-MEDI-0007912

PATIENT
  Sex: Female

DRUGS (2)
  1. SYNAGIS [Suspect]
     Indication: ANTIVIRAL PROPHYLAXIS
     Route: 030
     Dates: start: 20081204, end: 20090107
  2. SYNAGIS [Suspect]
     Route: 030
     Dates: start: 20081204

REACTIONS (12)
  - APNOEA [None]
  - CYANOSIS [None]
  - DIARRHOEA [None]
  - HYPOTHERMIA [None]
  - INFLUENZA [None]
  - LABILE BLOOD PRESSURE [None]
  - LOSS OF CONSCIOUSNESS [None]
  - MALAISE [None]
  - PNEUMONIA BACTERIAL [None]
  - RESPIRATORY SYNCYTIAL VIRUS BRONCHIOLITIS [None]
  - SKIN DISORDER [None]
  - SUPERINFECTION BACTERIAL [None]
